FAERS Safety Report 4957238-4 (Version None)
Quarter: 2006Q1

REPORT INFORMATION
  Report Type: 
  Country: None (occurrence: None)
  Receive Date: 20060329
  Receipt Date: 20050706
  Transmission Date: 20060701
  Serious: Yes (Hospitalization)
  Sender: FDA-Public Use
  Company Number: US-MERCK-0507USA00998

PATIENT
  Age: 60 Year
  Sex: Female
  Weight: 90 kg

DRUGS (2)
  1. VIOXX [Suspect]
     Indication: PAIN
     Route: 048
     Dates: start: 19991001, end: 20041005
  2. TYLENOL (CAPLET) [Concomitant]
     Route: 065

REACTIONS (13)
  - GALLBLADDER DISORDER [None]
  - HEADACHE [None]
  - HYPERCHOLESTEROLAEMIA [None]
  - HYPERTENSION [None]
  - HYPOTENSION [None]
  - INSOMNIA [None]
  - ISCHAEMIC STROKE [None]
  - LIVER FUNCTION TEST ABNORMAL [None]
  - NERVOUSNESS [None]
  - OSTEOPOROSIS [None]
  - PAIN IN EXTREMITY [None]
  - PARAESTHESIA [None]
  - VENTRICULAR HYPERTROPHY [None]
